FAERS Safety Report 6611144-8 (Version None)
Quarter: 2010Q1

REPORT INFORMATION
  Report Type: 
  Country: None (occurrence: None)
  Receive Date: 20100302
  Receipt Date: 20100302
  Transmission Date: 20100710
  Serious: Yes (Hospitalization)
  Sender: FDA-Public Use
  Company Number: None

PATIENT
  Age: 88 Year
  Sex: Female
  Weight: 60 kg

DRUGS (13)
  1. LYRICA [Suspect]
     Indication: BACK PAIN
     Dosage: 75MG BID PO (RECENT (ABOUT 2 WKS AGO) )
     Route: 048
  2. ASPIRIN [Suspect]
     Indication: CORONARY ARTERY DISEASE
     Dosage: 81MG DAILY PO (CHRONIC)
     Route: 048
  3. ZOCOR [Concomitant]
  4. TOPROL-XL [Concomitant]
  5. LASIX [Concomitant]
  6. ADVAIR DISKUS 100/50 [Concomitant]
  7. CELEBREX [Concomitant]
  8. NORFLEX [Concomitant]
  9. COMBIVENT [Concomitant]
  10. BONIVA [Concomitant]
  11. TRICOR [Concomitant]
  12. VIT E [Concomitant]
  13. VIT D [Concomitant]

REACTIONS (7)
  - BLOOD SODIUM INCREASED [None]
  - DUODENAL ULCER [None]
  - DYSARTHRIA [None]
  - FALL [None]
  - GASTROINTESTINAL HAEMORRHAGE [None]
  - HAEMOGLOBIN DECREASED [None]
  - VISION BLURRED [None]
